FAERS Safety Report 25237654 (Version 1)
Quarter: 2025Q2

REPORT INFORMATION
  Report Type: Spontaneous
  Country: US (occurrence: US)
  Receive Date: 20250425
  Receipt Date: 20250425
  Transmission Date: 20250716
  Serious: Yes (Other)
  Sender: UROGEN PHARMA
  Company Number: US-UROGEN PHARMA LTD.-2025-UGN-000036

PATIENT

DRUGS (4)
  1. JELMYTO [Suspect]
     Active Substance: MITOMYCIN
     Indication: Transitional cell cancer of the renal pelvis and ureter
     Dosage: UNK, ONCE A WEEK (INSTILLATION), UNILATERAL
     Route: 065
     Dates: start: 20250213, end: 20250213
  2. JELMYTO [Suspect]
     Active Substance: MITOMYCIN
     Dosage: UNK, ONCE A WEEK (INSTILLATION), UNILATERAL
     Route: 065
     Dates: start: 20250220, end: 20250220
  3. JELMYTO [Suspect]
     Active Substance: MITOMYCIN
     Dosage: UNK, ONCE A WEEK (INSTILLATION), UNILATERAL
     Route: 065
     Dates: start: 20250227, end: 20250227
  4. JELMYTO [Suspect]
     Active Substance: MITOMYCIN
     Dosage: UNK, ONCE A WEEK (INSTILLATION), UNILATERAL
     Route: 065
     Dates: start: 20250306, end: 20250306

REACTIONS (1)
  - Ureteric stenosis [Unknown]

NARRATIVE: CASE EVENT DATE: 20250314
